FAERS Safety Report 16908771 (Version 1)
Quarter: 2019Q4

REPORT INFORMATION
  Report Type: Spontaneous
  Country: US (occurrence: US)
  Receive Date: 20191011
  Receipt Date: 20191011
  Transmission Date: 20200122
  Serious: Yes (Life-Threatening, Other)
  Sender: FDA-Public Use
  Company Number: US-SHIRE-US201932453

PATIENT
  Sex: Female

DRUGS (1)
  1. NATPARA (PARATHYROID HORMONE) [Suspect]
     Active Substance: PARATHYROID HORMONE
     Indication: POST PROCEDURAL HYPOPARATHYROIDISM
     Dosage: 50 MICROGRAM
     Route: 065

REACTIONS (5)
  - Dizziness [Unknown]
  - Recalled product [Unknown]
  - Loss of consciousness [Unknown]
  - Muscle spasms [Unknown]
  - Disorganised speech [Unknown]
